FAERS Safety Report 8327879-5 (Version None)
Quarter: 2012Q2

REPORT INFORMATION
  Report Type: 
  Country: None (occurrence: None)
  Receive Date: 20120502
  Receipt Date: 20120420
  Transmission Date: 20120825
  Serious: Yes (Hospitalization)
  Sender: FDA-Public Use
  Company Number: US-JNJFOC-20120411766

PATIENT
  Age: 55 Year

DRUGS (1)
  1. STELARA [Suspect]
     Indication: PSORIASIS
     Route: 030

REACTIONS (2)
  - GASTROINTESTINAL HAEMORRHAGE [None]
  - INCORRECT ROUTE OF DRUG ADMINISTRATION [None]
